FAERS Safety Report 8193167-3 (Version None)
Quarter: 2012Q1

REPORT INFORMATION
  Report Type: 
  Country: None (occurrence: None)
  Receive Date: 20120222
  Receipt Date: 20110923
  Transmission Date: 20120608
  Serious: Yes (Other)
  Sender: FDA-Public Use
  Company Number: DSU-2011-07115

PATIENT
  Age: 73 Year
  Sex: Female

DRUGS (3)
  1. EVOXAC [Suspect]
     Indication: SJOGREN'S SYNDROME
     Dosage: 90 MG (30 MG,TID),PER ORAL
     Route: 048
  2. FOSAMAX [Concomitant]
  3. PLAQUENIL (HYDROXYCHLOROQUINE) (HYDROXYCHLOROQUINE) [Concomitant]

REACTIONS (1)
  - ATRIOVENTRICULAR BLOCK [None]
